FAERS Safety Report 11109619 (Version 1)
Quarter: 2015Q2

REPORT INFORMATION
  Report Type: Spontaneous
  Country: DK (occurrence: NL)
  Receive Date: 20150513
  Receipt Date: 20150513
  Transmission Date: 20150821
  Serious: Yes (Congenital Anomaly)
  Sender: FDA-Public Use
  Company Number: NL-FRI-1000076448

PATIENT
  Age: 0 Day
  Sex: Female

DRUGS (2)
  1. ESCITALOPRAM [Suspect]
     Active Substance: ESCITALOPRAM OXALATE
     Indication: ANXIETY
     Route: 064
  2. ESCITALOPRAM [Suspect]
     Active Substance: ESCITALOPRAM OXALATE
     Route: 048

REACTIONS (3)
  - Foetal exposure during pregnancy [Recovered/Resolved]
  - Hypoplastic left heart syndrome [Not Recovered/Not Resolved]
  - Dextrocardia [Not Recovered/Not Resolved]

NARRATIVE: CASE EVENT DATE: 20140828
